FAERS Safety Report 20578538 (Version 1)
Quarter: 2022Q1

REPORT INFORMATION
  Report Type: Spontaneous
  Country: US (occurrence: US)
  Receive Date: 20220310
  Receipt Date: 20220310
  Transmission Date: 20220423
  Serious: No
  Sender: FDA-Public Use
  Company Number: US-TERSERA THERAPEUTICS LLC-2021TRS003920

PATIENT

DRUGS (11)
  1. XERMELO [Interacting]
     Active Substance: TELOTRISTAT ETHYL
     Indication: Carcinoid syndrome
     Dosage: 250 MG, TID (WITH MEALS)
     Route: 065
     Dates: start: 20210526, end: 20210720
  2. XERMELO [Interacting]
     Active Substance: TELOTRISTAT ETHYL
     Dosage: 250 MG
     Route: 065
     Dates: end: 20211231
  3. RIVASTIGMINE TARTRATE [Interacting]
     Active Substance: RIVASTIGMINE TARTRATE
     Indication: Product used for unknown indication
     Dosage: 4.5 MG, BID
     Route: 065
  4. NUPLAZID [Interacting]
     Active Substance: PIMAVANSERIN TARTRATE
     Indication: Product used for unknown indication
     Dosage: 3400 MG, QD
     Route: 065
  5. CARBIDOPA AND LEVODOPA [Interacting]
     Active Substance: CARBIDOPA\LEVODOPA
     Indication: Product used for unknown indication
     Dosage: 25-100MG, BID
     Route: 065
  6. MEMANTINE [Interacting]
     Active Substance: MEMANTINE
     Indication: Product used for unknown indication
     Dosage: 5 MG, BID
     Route: 065
  7. OCTREOTIDE [Concomitant]
     Active Substance: OCTREOTIDE
     Indication: Product used for unknown indication
     Dosage: UNK
     Route: 065
     Dates: start: 20210720
  8. HIPREX [METHENAMINE HIPPURATE] [Concomitant]
     Indication: Product used for unknown indication
     Dosage: 1 GRAM, BID
     Route: 065
  9. ISRADIPINE [Concomitant]
     Active Substance: ISRADIPINE
     Indication: Product used for unknown indication
     Dosage: 5 MG, BID
     Route: 065
  10. FINASTERIDE [Concomitant]
     Active Substance: FINASTERIDE
     Indication: Product used for unknown indication
     Dosage: 5 MG, QD
     Route: 065
  11. SULFAMETHOXAZOLE AND TRIMETHOPRIM [Concomitant]
     Active Substance: SULFAMETHOXAZOLE\TRIMETHOPRIM
     Indication: Product used for unknown indication
     Dosage: 400-80MG, QD
     Route: 065

REACTIONS (4)
  - Confusional state [Recovered/Resolved]
  - Asthenia [Recovered/Resolved]
  - Weight decreased [Unknown]
  - Drug interaction [Unknown]
